FAERS Safety Report 17351471 (Version 1)
Quarter: 2020Q1

REPORT INFORMATION
  Report Type: Spontaneous
  Country: US (occurrence: US)
  Receive Date: 20200130
  Receipt Date: 20200130
  Transmission Date: 20200409
  Serious: No
  Sender: FDA-Public Use
  Company Number: US-BAUSCH-BL-2020-001593

PATIENT
  Age: 57 Year
  Sex: Female

DRUGS (2)
  1. DUOBRII [Suspect]
     Active Substance: HALOBETASOL PROPIONATE\TAZAROTENE
     Indication: GUTTATE PSORIASIS
     Dosage: STRENGTH: 0.01/0.045 PERCENT
     Route: 061
     Dates: start: 201912, end: 202001
  2. DUOBRII [Suspect]
     Active Substance: HALOBETASOL PROPIONATE\TAZAROTENE
     Indication: PRODUCT USE IN UNAPPROVED INDICATION

REACTIONS (3)
  - Drug effective for unapproved indication [Unknown]
  - Skin abrasion [Unknown]
  - Product use in unapproved indication [Unknown]

NARRATIVE: CASE EVENT DATE: 201912
